FAERS Safety Report 20205435 (Version 1)
Quarter: 2021Q4

REPORT INFORMATION
  Report Type: Spontaneous
  Country: DE (occurrence: DE)
  Receive Date: 20211220
  Receipt Date: 20211220
  Transmission Date: 20220303
  Serious: Yes (Hospitalization)
  Sender: FDA-Public Use
  Company Number: DE-ADRED-07077-01

PATIENT
  Age: 72 Year
  Sex: Male
  Weight: 76 kg

DRUGS (4)
  1. AMLODIPINE [Suspect]
     Active Substance: AMLODIPINE BESYLATE
     Indication: Product used for unknown indication
     Dosage: 10 MILLIGRAM ( 1-0-0-0)
     Route: 048
  2. EDOXABAN [Concomitant]
     Active Substance: EDOXABAN
     Indication: Product used for unknown indication
     Dosage: 30 MILLIGRAM (1-0-0-0)
     Route: 048
  3. RAMIPRIL [Concomitant]
     Active Substance: RAMIPRIL
     Indication: Product used for unknown indication
     Dosage: 2.5 MILLIGRAM ( 1-0-0-0)
     Route: 048
  4. METOPROLOL [Concomitant]
     Active Substance: METOPROLOL
     Indication: Product used for unknown indication
     Dosage: 47.5 MILLIGRAM ( 1-0-1-0)
     Route: 048

REACTIONS (4)
  - Product prescribing error [Unknown]
  - Cough [Unknown]
  - Dyspnoea [Unknown]
  - Weight decreased [Unknown]
